FAERS Safety Report 10386704 (Version 2)
Quarter: 2014Q3

REPORT INFORMATION
  Report Type: Spontaneous
  Country: GB (occurrence: GB)
  Receive Date: 20140815
  Receipt Date: 20140827
  Transmission Date: 20150326
  Serious: Yes (Hospitalization, Other)
  Sender: FDA-Public Use
  Company Number: GB-AMGEN-GBRSP2014061212

PATIENT
  Age: 78 Year
  Sex: Female
  Weight: 76 kg

DRUGS (2)
  1. PROLIA [Suspect]
     Active Substance: DENOSUMAB
     Indication: OSTEOPOROSIS
     Dosage: 60 MG, STAT
     Route: 058
     Dates: start: 201301, end: 201301
  2. INSULIN [Concomitant]
     Active Substance: INSULIN NOS
     Indication: DIABETES MELLITUS

REACTIONS (6)
  - Headache [Recovering/Resolving]
  - Spinal disorder [Recovering/Resolving]
  - Cervical myelopathy [Recovering/Resolving]
  - Musculoskeletal pain [Recovering/Resolving]
  - Intervertebral disc degeneration [Recovering/Resolving]
  - Myalgia [Recovering/Resolving]

NARRATIVE: CASE EVENT DATE: 20130618
